FAERS Safety Report 9749513 (Version 2)
Quarter: 2014Q1

REPORT INFORMATION
  Report Type: Spontaneous
  Country: US (occurrence: US)
  Receive Date: 20131212
  Receipt Date: 20140317
  Transmission Date: 20141002
  Serious: Yes (Hospitalization)
  Sender: FDA-Public Use
  Company Number: US-GILEAD-2013-0089737

PATIENT
  Sex: Female

DRUGS (13)
  1. LETAIRIS [Suspect]
     Indication: PULMONARY HYPERTENSION
     Dosage: 10 MG, QD
     Route: 048
     Dates: start: 20111221
  2. FOSAMAX [Concomitant]
  3. PREDNISONE [Concomitant]
  4. DILANTIN                           /00017401/ [Concomitant]
  5. SILDENAFIL [Concomitant]
  6. MECLIZINE                          /00072801/ [Concomitant]
  7. CALCIUM [Concomitant]
  8. MULTIVITAMIN                       /07504101/ [Concomitant]
  9. TOPROL [Concomitant]
  10. LEVOXYL [Concomitant]
  11. LASIX                              /00032601/ [Concomitant]
  12. AVAPRO [Concomitant]
  13. CRESTOR [Concomitant]

REACTIONS (1)
  - Lower limb fracture [Unknown]
